FAERS Safety Report 8869234 (Version 1)
Quarter: 2012Q4

REPORT INFORMATION
  Report Type: 
  Country: GB (occurrence: None)
  Receive Date: 20121022
  Receipt Date: 20121022
  Transmission Date: 20130627
  Serious: Yes (Other)
  Sender: FDA-Public Use
  Company Number: 2012SUN00138

PATIENT
  Age: 73 Year
  Sex: Female
  Weight: 167.6 kg

DRUGS (12)
  1. OXAPLATIN [Suspect]
     Indication: GASTROINTESTINAL CARCINOMA
     Dosage: 250 mg, UNK, Intravenous
     Route: 042
  2. CAPECITABINE [Suspect]
     Route: 048
  3. ATENOLOL [Concomitant]
  4. BUCCASTEM (PROCHLORPERAZINE MALEATE) [Concomitant]
  5. DEXAMETHASONE (DEXAMETHASONE) [Concomitant]
  6. LANTUS (INSULIN GLARGINE) [Concomitant]
  7. LISINOPRIL (LISINOPRIL) [Concomitant]
  8. METFORMIN (METFORMIN) [Concomitant]
  9. METOCLOPRAMIDE (METOCLOPRAMIDE) [Concomitant]
  10. NOVOPRAPID (INSULIN ASPART) [Concomitant]
  11. SIMVASTATIN (SIMVASTATIN) [Concomitant]
  12. ZOPICLONE (ZOPICLONE) 08/31/2012 TO UNKNOWN [Concomitant]

REACTIONS (4)
  - Shock [None]
  - Pneumonia aspiration [None]
  - Ileus [None]
  - Lactic acidosis [None]
